FAERS Safety Report 25367630 (Version 1)
Quarter: 2025Q2

REPORT INFORMATION
  Report Type: Report from Study
  Country: JP (occurrence: JP)
  Receive Date: 20250528
  Receipt Date: 20250528
  Transmission Date: 20250716
  Serious: Yes (Other)
  Sender: UCB
  Company Number: JP-UCBSA-2025030208

PATIENT

DRUGS (2)
  1. CERTOLIZUMAB PEGOL [Suspect]
     Active Substance: CERTOLIZUMAB PEGOL
     Indication: Rheumatoid arthritis
  2. METHOTREXATE [Concomitant]
     Active Substance: METHOTREXATE
     Indication: Rheumatoid arthritis

REACTIONS (7)
  - Neoplasm malignant [Unknown]
  - Infection [Unknown]
  - Rash [Unknown]
  - Hepatic enzyme increased [Unknown]
  - Injection site reaction [Unknown]
  - Adverse event [Unknown]
  - Drug ineffective [Unknown]
